FAERS Safety Report 15253654 (Version 2)
Quarter: 2018Q3

REPORT INFORMATION
  Report Type: Report from Study
  Country: US (occurrence: US)
  Receive Date: 20180808
  Receipt Date: 20180814
  Transmission Date: 20181010
  Serious: Yes (Hospitalization)
  Sender: FDA-Public Use
  Company Number: US-ROCHE-2162705

PATIENT
  Age: 37 Year
  Sex: Female
  Weight: 85.81 kg

DRUGS (14)
  1. LAMICTAL [Concomitant]
     Active Substance: LAMOTRIGINE
     Indication: SEIZURE
     Dosage: ONCE DAILY AT NIGHT, STARTED 3 MONTHS AGO ;ONGOING: YES
     Route: 065
  2. LYRICA [Concomitant]
     Active Substance: PREGABALIN
     Indication: NEURALGIA
     Dosage: STARTED 5 YEARS AGO
     Route: 065
  3. PHENERGAN [Concomitant]
     Active Substance: PROMETHAZINE HYDROCHLORIDE
     Indication: NAUSEA
     Dosage: AS NEEDED FOR NAUESE, STARTED 3 YEARS AGO ;ONGOING: YES
     Route: 065
  4. LISINOPRIL. [Concomitant]
     Active Substance: LISINOPRIL
     Indication: HYPERTENSION
     Dosage: STARTED A WEEK AND A HALF AGO ;ONGOING: NO
     Route: 065
     Dates: end: 20180730
  5. ZYPREXA [Concomitant]
     Active Substance: OLANZAPINE
     Indication: ANXIETY
     Dosage: ONCE AT NIGHT, STARTED A WEEK AND A HALF AGO ;ONGOING: YES
     Route: 065
  6. PERCOCET [Concomitant]
     Active Substance: ACETAMINOPHEN\OXYCODONE HYDROCHLORIDE
     Indication: PAIN
     Dosage: 5/325 MG , EVERY 6?8 HOURS AS NEEDED FOR PAIN ;ONGOING: YES
     Route: 065
  7. MAXALT MELT [Concomitant]
     Indication: MIGRAINE
     Dosage: AS NEEDED FOR MIGRAINE, STARTED 7 YEARS AGO ;ONGOING: YES
     Route: 065
  8. LAMICTAL [Concomitant]
     Active Substance: LAMOTRIGINE
     Indication: BIPOLAR DISORDER
     Dosage: AT MID?DAY, STARTED A LITTLE OVER A WEEK AGO ;ONGOING: YES
     Route: 065
  9. LISINOPRIL. [Concomitant]
     Active Substance: LISINOPRIL
     Dosage: ONGOING: YES
     Route: 065
     Dates: start: 20180730
  10. OCREVUS [Suspect]
     Active Substance: OCRELIZUMAB
     Indication: MULTIPLE SCLEROSIS
     Dosage: 1ST HALF DOSE ;ONGOING: UNKNOWN?SHE RECEIVED 2 DOSES OF OCRELIZUMAB
     Route: 042
     Dates: start: 20180702
  11. CHANTIX [Concomitant]
     Active Substance: VARENICLINE TARTRATE
     Indication: EX-TOBACCO USER
     Dosage: YES
     Route: 065
  12. PRISTIQ EXTENDED?RELEASE [Concomitant]
     Active Substance: DESVENLAFAXINE SUCCINATE
     Indication: DEPRESSION
     Dosage: ONGOING: YES
     Route: 065
  13. XANAX [Concomitant]
     Active Substance: ALPRAZOLAM
     Indication: ANXIETY
     Dosage: ONGOING: YES
     Route: 065
  14. BACLOFEN. [Concomitant]
     Active Substance: BACLOFEN
     Dosage: ONGOING: YES?FOR MS TWITCHING IN FACE AND DROOPINESS
     Route: 065

REACTIONS (4)
  - Hypertension [Unknown]
  - Injection site pain [Not Recovered/Not Resolved]
  - Psychotic disorder [Unknown]
  - Vein rupture [Unknown]

NARRATIVE: CASE EVENT DATE: 20180716
